FAERS Safety Report 23371707 (Version 1)
Quarter: 2024Q1

REPORT INFORMATION
  Report Type: Spontaneous
  Country: CN (occurrence: CN)
  Receive Date: 20240105
  Receipt Date: 20240105
  Transmission Date: 20240410
  Serious: Yes (Other)
  Sender: FDA-Public Use
  Company Number: CN-PFIZER INC-202300456887

PATIENT
  Age: 3 Month
  Sex: Female

DRUGS (5)
  1. CEFOPERAZONE SODIUM\SULBACTAM SODIUM [Suspect]
     Active Substance: CEFOPERAZONE SODIUM\SULBACTAM SODIUM
     Indication: Infection
     Dosage: UNK
     Dates: start: 20231111, end: 20231115
  2. CEFOPERAZONE SODIUM\SULBACTAM SODIUM [Suspect]
     Active Substance: CEFOPERAZONE SODIUM\SULBACTAM SODIUM
     Dosage: UNK
     Dates: start: 20231120, end: 20231123
  3. TYGACIL [Suspect]
     Active Substance: TIGECYCLINE
     Indication: Infection
     Dosage: UNK
     Dates: start: 20231111, end: 20231123
  4. IMIPENEM [Suspect]
     Active Substance: IMIPENEM
     Dosage: UNK
     Dates: start: 20231106, end: 20231123
  5. CASPOFUNGIN [Suspect]
     Active Substance: CASPOFUNGIN
     Dosage: UNK
     Dates: start: 20231106, end: 20231123

REACTIONS (4)
  - Drug ineffective [Unknown]
  - Respiratory tract infection [Unknown]
  - White blood cell count increased [Recovered/Resolved]
  - Blood test abnormal [Recovered/Resolved]
